FAERS Safety Report 23956632 (Version 1)
Quarter: 2024Q2

REPORT INFORMATION
  Report Type: Spontaneous
  Country: IR (occurrence: IR)
  Receive Date: 20240610
  Receipt Date: 20240610
  Transmission Date: 20240716
  Serious: Yes (Hospitalization)
  Sender: FDA-Public Use
  Company Number: IR-Axellia-005210

PATIENT
  Age: 32 Year
  Sex: Male

DRUGS (6)
  1. COLISTIMETHATE SODIUM [Suspect]
     Active Substance: COLISTIMETHATE SODIUM
     Indication: Pseudomonas infection
     Dosage: DAILY IN TWO DIVIDED DOSES
     Route: 042
  2. MEROPENEM [Concomitant]
     Active Substance: MEROPENEM
     Indication: Pseudomonas infection
     Route: 042
  3. VANCOMYCIN [Concomitant]
     Active Substance: VANCOMYCIN
     Indication: Antibiotic therapy
     Route: 042
  4. CLINDAMYCIN [Concomitant]
     Active Substance: CLINDAMYCIN
     Indication: Antibiotic therapy
  5. PHENYTOIN [Concomitant]
     Active Substance: PHENYTOIN
     Indication: Antibiotic therapy
  6. LEVETIRACETAM [Concomitant]
     Active Substance: LEVETIRACETAM
     Indication: Antibiotic therapy

REACTIONS (1)
  - Pseudo-Bartter syndrome [Recovered/Resolved]
